FAERS Safety Report 20885884 (Version 1)
Quarter: 2022Q2

REPORT INFORMATION
  Report Type: Spontaneous
  Country: US (occurrence: US)
  Receive Date: 20220527
  Receipt Date: 20220527
  Transmission Date: 20220720
  Serious: No
  Sender: FDA-Public Use
  Company Number: US-NOVARTISTESTPH-NVSC2022US120217

PATIENT
  Sex: Female

DRUGS (1)
  1. XIIDRA [Suspect]
     Active Substance: LIFITEGRAST
     Indication: Product used for unknown indication
     Dosage: 1 DRP, BID (BOTH EYE)
     Route: 065
     Dates: start: 20220421

REACTIONS (3)
  - Gingival pain [Unknown]
  - Gingival recession [Unknown]
  - Product storage error [Unknown]
